FAERS Safety Report 6354288-0 (Version None)
Quarter: 2009Q3

REPORT INFORMATION
  Report Type: 
  Country: None (occurrence: None)
  Receive Date: 20090914
  Receipt Date: 20090903
  Transmission Date: 20100115
  Serious: Yes (Other)
  Sender: FDA-Public Use
  Company Number: PHHY2009NL38389

PATIENT
  Sex: Male
  Weight: 85 kg

DRUGS (3)
  1. LAMISIL [Suspect]
     Indication: ONYCHOMYCOSIS
     Dosage: 250 MG, QD
     Route: 048
     Dates: start: 20030101, end: 20030101
  2. DIPHANTOINE [Concomitant]
     Dosage: 1 DF, BID
  3. FENOBARBITAL [Concomitant]
     Dosage: 100 MG, BID
     Dates: start: 19700101

REACTIONS (1)
  - GRAND MAL CONVULSION [None]
